FAERS Safety Report 17581792 (Version 1)
Quarter: 2020Q1

REPORT INFORMATION
  Report Type: Spontaneous
  Country: GB (occurrence: GB)
  Receive Date: 20200325
  Receipt Date: 20200325
  Transmission Date: 20200409
  Serious: Yes (Hospitalization)
  Sender: FDA-Public Use
  Company Number: GB-MYLANLABS-2020M1030544

PATIENT
  Age: 63 Year
  Sex: Male

DRUGS (20)
  1. ENTACAPONE. [Suspect]
     Active Substance: ENTACAPONE
     Dosage: 200 MILLIGRAM, QD
     Route: 048
  2. LEVODOPA [Suspect]
     Active Substance: LEVODOPA
     Indication: PRODUCT USED FOR UNKNOWN INDICATION
     Dosage: 200 MILLIGRAM, QD
     Route: 048
  3. LEVODOPA [Suspect]
     Active Substance: LEVODOPA
     Dosage: 375 MILLIGRAM, QD
     Route: 048
  4. CO-BENELDOPA [Suspect]
     Active Substance: BENSERAZIDE HYDROCHLORIDE\LEVODOPA
     Indication: PRODUCT USED FOR UNKNOWN INDICATION
     Dosage: EVERY NIGHT, 12.5MG/50MG
     Route: 048
  5. ROPINIROLE. [Concomitant]
     Active Substance: ROPINIROLE
     Dosage: EVERY NIGHT
     Route: 048
  6. ATORVASTATIN [Concomitant]
     Active Substance: ATORVASTATIN
     Dosage: EVERY NIGHT
     Route: 048
  7. AMANTADINE. [Concomitant]
     Active Substance: AMANTADINE HYDROCHLORIDE
     Dosage: 400 MILLIGRAM, QD
     Route: 048
  8. LEVODOPA [Suspect]
     Active Substance: LEVODOPA
     Dosage: 75 MILLIGRAM, QD,ON
     Route: 048
  9. CO-BENELDOPA [Suspect]
     Active Substance: BENSERAZIDE HYDROCHLORIDE\LEVODOPA
     Indication: PRODUCT USED FOR UNKNOWN INDICATION
     Dosage: 25MG/100MG
     Route: 048
  10. CLOPIDOGREL [Concomitant]
     Active Substance: CLOPIDOGREL BISULFATE
     Dosage: EVERY MORNING
     Route: 048
  11. TAMSULOSIN [Concomitant]
     Active Substance: TAMSULOSIN
     Dosage: EVERY MORNING
     Route: 048
  12. CARBIDOPA. [Suspect]
     Active Substance: CARBIDOPA
     Indication: PRODUCT USED FOR UNKNOWN INDICATION
     Dosage: 50 MILLIGRAM, QD
     Route: 048
  13. ROTIGOTINE [Concomitant]
     Active Substance: ROTIGOTINE
     Dosage: 4 MILLIGRAM
     Route: 062
  14. SELEGILINE [Concomitant]
     Active Substance: SELEGILINE
     Dosage: EVERY MORNING
     Route: 051
  15. AMANTADINE. [Concomitant]
     Active Substance: AMANTADINE HYDROCHLORIDE
     Dosage: 100 MILLIGRAM, QD
     Route: 048
  16. CLONAZEPAM. [Concomitant]
     Active Substance: CLONAZEPAM
     Dosage: 500 MICROGRAM, QD
     Route: 048
  17. ENTACAPONE. [Suspect]
     Active Substance: ENTACAPONE
     Dosage: 600 MILLIGRAM, QD
     Route: 048
  18. ENTACAPONE. [Suspect]
     Active Substance: ENTACAPONE
     Indication: PRODUCT USED FOR UNKNOWN INDICATION
     Dosage: 400 MILLIGRAM, QD
     Route: 048
  19. CARBIDOPA. [Suspect]
     Active Substance: CARBIDOPA
     Dosage: 93.75 MILLIGRAM, QD
     Route: 048
  20. CARBIDOPA. [Suspect]
     Active Substance: CARBIDOPA
     Dosage: 18.75 MILLIGRAM, QD,EVERY NIGHT
     Route: 048

REACTIONS (4)
  - Encephalitis [Unknown]
  - Tremor [Unknown]
  - Cognitive disorder [Unknown]
  - Cardiac arrest [Recovered/Resolved]

NARRATIVE: CASE EVENT DATE: 20191115
